FAERS Safety Report 15484219 (Version 1)
Quarter: 2018Q4

REPORT INFORMATION
  Report Type: Spontaneous
  Country: GR (occurrence: GR)
  Receive Date: 20181010
  Receipt Date: 20181010
  Transmission Date: 20190205
  Serious: Yes (Other)
  Sender: FDA-Public Use
  Company Number: GR-BAYER-2018-188509

PATIENT
  Age: 40 Year
  Sex: Female

DRUGS (1)
  1. MOXIFLOXACIN ORAL [Suspect]
     Active Substance: MOXIFLOXACIN
     Indication: PNEUMONIA
     Dosage: 1 DF, QD
     Route: 048
     Dates: start: 20180817, end: 20180826

REACTIONS (1)
  - Rotator cuff syndrome [Recovering/Resolving]
